FAERS Safety Report 8528943 (Version 9)
Quarter: 2013Q4

REPORT INFORMATION
  Report Type: Spontaneous
  Country: PT (occurrence: PT)
  Receive Date: 20120417
  Receipt Date: 20131209
  Transmission Date: 20140711
  Serious: Yes (Hospitalization)
  Sender: FDA-Public Use
  Company Number: PT-009507513-2012SP019180

PATIENT
  Age: 29 Year
  Sex: Female

DRUGS (2)
  1. IMPLANON NXT [Suspect]
     Indication: CONTRACEPTION
     Dosage: 1 DF, UNKNOWN
     Route: 065
     Dates: start: 20120105, end: 20120210
  2. SPASMOPLEX [Suspect]
     Indication: URINARY INCONTINENCE
     Dosage: UNK UNK, UNKNOWN
     Route: 065
     Dates: start: 201111

REACTIONS (1)
  - Hepatitis cholestatic [Recovered/Resolved]
